FAERS Safety Report 4554634-4 (Version None)
Quarter: 2005Q1

REPORT INFORMATION
  Report Type: 
  Country: None (occurrence: None)
  Receive Date: 20041228
  Receipt Date: 20041116
  Transmission Date: 20050727
  Serious: No
  Sender: FDA-Public Use
  Company Number: IND-AE-04-SAN-018

PATIENT
  Age: 73 Year
  Sex: Female

DRUGS (6)
  1. VYTORIN [Suspect]
  2. SANCTURA [Suspect]
     Indication: HYPERTONIC BLADDER
     Dosage: 20 MG-BID-ORAL
     Route: 048
     Dates: start: 20041105, end: 20041112
  3. NEXIUM [Concomitant]
  4. CELEBREX [Concomitant]
  5. LEVOTHROID [Concomitant]
  6. ACTONEL [Concomitant]

REACTIONS (1)
  - ALOPECIA [None]
